FAERS Safety Report 8200774-8 (Version None)
Quarter: 2012Q1

REPORT INFORMATION
  Report Type: 
  Country: None (occurrence: None)
  Receive Date: 20120307
  Receipt Date: 20120227
  Transmission Date: 20120608
  Serious: Yes (Life-Threatening, Hospitalization)
  Sender: FDA-Public Use
  Company Number: 216906

PATIENT
  Age: 59 Year
  Sex: Female

DRUGS (5)
  1. INNOHEP [Suspect]
     Indication: PROPHYLAXIS
     Dosage: (1 IN 1 D),SC
     Route: 058
     Dates: start: 20110201, end: 20111109
  2. YERVOY [Suspect]
     Indication: METASTATIC MALIGNANT MELANOMA
     Dosage: (1 TOTAL),INTRAVENOUS (NOT OTHERWISE SPECIFIED)
     Route: 042
     Dates: start: 20111007, end: 20111028
  3. PARIET 10 MG COMPRIMIDOS GASTRORRESISTENTES, 28 COMPRIMIDOS [Concomitant]
  4. ATRORVASTATINA (ATORVASTATIN CALCIUM) [Concomitant]
  5. LYRICA 75MG 100 CAPSULAS DURAS [Concomitant]

REACTIONS (5)
  - DIARRHOEA [None]
  - UPPER GASTROINTESTINAL HAEMORRHAGE [None]
  - ANAEMIA [None]
  - INCORRECT DRUG ADMINISTRATION DURATION [None]
  - HIATUS HERNIA [None]
